FAERS Safety Report 7111196-5 (Version None)
Quarter: 2010Q4

REPORT INFORMATION
  Report Type: 
  Country: None (occurrence: None)
  Receive Date: 20101112
  Receipt Date: 20100110
  Transmission Date: 20110411
  Serious: No
  Sender: FDA-Public Use
  Company Number: 20107949

PATIENT
  Sex: Female

DRUGS (1)
  1. LIORESAL [Suspect]
     Indication: MUSCLE SPASTICITY
     Dosage: INTRATHECAL
     Route: 037

REACTIONS (1)
  - UNEVALUABLE EVENT [None]
